FAERS Safety Report 5210247-2 (Version None)
Quarter: 2007Q1

REPORT INFORMATION
  Report Type: 
  Country: None (occurrence: None)
  Receive Date: 20070112
  Receipt Date: 20070112
  Transmission Date: 20070707
  Serious: Yes (Life-Threatening)
  Sender: FDA-Public Use
  Company Number: None

PATIENT
  Age: 65 Year
  Sex: Female
  Weight: 58.0604 kg

DRUGS (1)
  1. AMBIEN CR [Suspect]
     Indication: INSOMNIA
     Dosage: ONE AT BEDTIME
     Dates: start: 20060108

REACTIONS (6)
  - ABNORMAL SLEEP-RELATED EVENT [None]
  - BACK INJURY [None]
  - FALL [None]
  - HEAD INJURY [None]
  - NECK INJURY [None]
  - SLEEP WALKING [None]
